FAERS Safety Report 4336560-9 (Version None)
Quarter: 2004Q2

REPORT INFORMATION
  Report Type: 
  Country: None (occurrence: None)
  Receive Date: 20040409
  Receipt Date: 20040409
  Transmission Date: 20050107
  Serious: No
  Sender: FDA-Public Use
  Company Number: None

PATIENT
  Sex: Female

DRUGS (1)
  1. TAMOXIFEN/NOLVADE 20 MG  ZENECA [Suspect]
     Indication: BREAST CANCER
     Dosage: 20 MG DAILY ORAL
     Route: 048
     Dates: start: 19990604, end: 20040110

REACTIONS (1)
  - RETINOPATHY [None]
